FAERS Safety Report 4354479-4 (Version None)
Quarter: 2004Q2

REPORT INFORMATION
  Report Type: 
  Country: None (occurrence: None)
  Receive Date: 20040503
  Receipt Date: 20040420
  Transmission Date: 20050107
  Serious: Yes (Death)
  Sender: FDA-Public Use
  Company Number: 093-20785-04040562

PATIENT
  Age: 74 Year
  Sex: Female

DRUGS (1)
  1. THALIDOMIDE - PHARMION (THALIDOMIDE) (CAPSULES) [Suspect]
     Indication: MYELOFIBROSIS
     Dosage: ORAL
     Route: 048

REACTIONS (1)
  - ACUTE LEUKAEMIA [None]
